FAERS Safety Report 8819757 (Version 2)
Quarter: 2015Q3

REPORT INFORMATION
  Report Type: Report from Study
  Country: US (occurrence: US)
  Receive Date: 20121001
  Receipt Date: 20150810
  Transmission Date: 20151125
  Serious: Yes (Death, Other)
  Sender: FDA-Public Use
  Company Number: US-ROCHE-1129501

PATIENT
  Sex: Female
  Weight: 82.63 kg

DRUGS (13)
  1. ARIMIDEX [Concomitant]
     Active Substance: ANASTROZOLE
  2. HERCEPTIN [Suspect]
     Active Substance: TRASTUZUMAB
     Dosage: MAINTENANCE DOSE
     Route: 042
  3. 5-FLUOROURACIL [Concomitant]
     Active Substance: FLUOROURACIL
     Route: 041
  4. HERCEPTIN [Suspect]
     Active Substance: TRASTUZUMAB
     Route: 042
  5. 5-FLUOROURACIL [Concomitant]
     Active Substance: FLUOROURACIL
     Route: 042
     Dates: start: 1997
  6. PROVENTIL [Concomitant]
     Active Substance: ALBUTEROL
  7. TAXOTERE [Concomitant]
     Active Substance: DOCETAXEL
     Route: 065
     Dates: start: 19990623
  8. CYTOXAN [Concomitant]
     Active Substance: CYCLOPHOSPHAMIDE
     Route: 042
     Dates: start: 1997
  9. LORTAB (ACETAMINOPHEN/HYDROCODONE BITARTRATE) [Concomitant]
  10. ROBITUSSIN DAC [Concomitant]
  11. XELODA [Suspect]
     Active Substance: CAPECITABINE
     Indication: BREAST CANCER FEMALE
     Route: 048
  12. HERCEPTIN [Suspect]
     Active Substance: TRASTUZUMAB
     Indication: BREAST CANCER FEMALE
     Dosage: LOADING DOSE
     Route: 042
     Dates: start: 19990820
  13. ADRIAMYCIN [Concomitant]
     Active Substance: DOXORUBICIN HYDROCHLORIDE
     Route: 042
     Dates: start: 1997

REACTIONS (6)
  - Fluid retention [Unknown]
  - Oedema [Unknown]
  - Pain [Unknown]
  - Death [Fatal]
  - Dyspnoea [Unknown]
  - Disease progression [Unknown]
